FAERS Safety Report 9474077 (Version 1)
Quarter: 2013Q3

REPORT INFORMATION
  Report Type: Spontaneous
  Country: US (occurrence: None)
  Receive Date: 20130820
  Receipt Date: 20130820
  Transmission Date: 20140515
  Serious: Yes (Other)
  Sender: FDA-Public Use
  Company Number: AUR-APL-2013-06751

PATIENT
  Age: 67 Year
  Sex: Female
  Weight: 72.56 kg

DRUGS (10)
  1. LISINOPRIL (LISINOPRIL) [Suspect]
     Indication: HYPERTENSION
     Dosage: (30 MG, 1 IN 1 D)
  2. LEVOXYL [Suspect]
     Indication: HYPOTHYROIDISM
     Dosage: (50 MCG, 1 D)
     Dates: start: 2004, end: 20130508
  3. LEVOTHYROXINE (LEVOTHYROXINE) [Suspect]
     Indication: HYPOTHYROIDISM
     Route: 048
     Dates: start: 20130507, end: 20130715
  4. ARMOUR THYROID [Suspect]
     Indication: HYPOTHYROIDISM
     Route: 048
     Dates: start: 20130715, end: 20130729
  5. VITAMIN D (VITAMIN D NOS) [Concomitant]
  6. CALCIUM (CALCIUM) [Concomitant]
  7. COZAAR (LOSARTAN POTASSIUM) (50 MILLIGRAM, TABLETS) (LOSARTAN POTASSIUM) [Concomitant]
  8. CYTOMEL (LIOTHYRONINE SODIUM) [Concomitant]
  9. ASA (ACETYLSALICYLIC ACID) [Concomitant]
  10. CARTIA (ACETYLSALICYLIC ACID) [Concomitant]

REACTIONS (6)
  - Nausea [None]
  - Chills [None]
  - Fatigue [None]
  - Angioedema [None]
  - Arthralgia [None]
  - Hypersensitivity [None]
